FAERS Safety Report 18949007 (Version 1)
Quarter: 2021Q1

REPORT INFORMATION
  Report Type: Spontaneous
  Country: DE (occurrence: DE)
  Receive Date: 20210227
  Receipt Date: 20210227
  Transmission Date: 20210420
  Serious: Yes (Other)
  Sender: FDA-Public Use
  Company Number: DE-AUROBINDO-AUR-APL-2021-007712

PATIENT
  Age: 50 Year
  Sex: Female

DRUGS (4)
  1. CLINDAMYCIN. [Interacting]
     Active Substance: CLINDAMYCIN
     Indication: INFECTION
     Dosage: UNK
     Route: 048
     Dates: start: 20191001, end: 201912
  2. LEVODOPA [Concomitant]
     Active Substance: LEVODOPA
     Indication: PARKINSON^S DISEASE
     Dosage: UNK UNK, DAILY (6?7X 100MG)
     Route: 065
  3. CLARIUM [PIRIBEDIL] [Interacting]
     Active Substance: PIRIBEDIL
     Indication: PARKINSON^S DISEASE
     Dosage: 350 MILLIGRAM, ONCE A DAY (7?0?0)
     Route: 065
  4. LEVOFLOXACIN. [Suspect]
     Active Substance: LEVOFLOXACIN
     Indication: INFECTION
     Dosage: UNK
     Route: 048
     Dates: start: 20191001, end: 201912

REACTIONS (7)
  - Delirium [Recovered/Resolved]
  - Prescribed overdose [Unknown]
  - Off label use [Unknown]
  - Therapeutic product effect incomplete [Unknown]
  - Restlessness [Recovered/Resolved]
  - Sleep disorder [Recovered/Resolved]
  - Drug interaction [Recovered/Resolved]

NARRATIVE: CASE EVENT DATE: 20191001
